FAERS Safety Report 10053296 (Version 2)
Quarter: 2014Q2

REPORT INFORMATION
  Report Type: Spontaneous
  Country: US (occurrence: US)
  Receive Date: 20140402
  Receipt Date: 20140611
  Transmission Date: 20141212
  Serious: No
  Sender: FDA-Public Use
  Company Number: US-009507513-1403USA014342

PATIENT
  Sex: Female

DRUGS (1)
  1. CLARITIN REDITABS [Suspect]
     Indication: HYPERSENSITIVITY
     Dosage: UNK, UNKNOWN
     Route: 048
     Dates: start: 2014

REACTIONS (6)
  - Oropharyngeal pain [Unknown]
  - Productive cough [Unknown]
  - Sneezing [Unknown]
  - Rhinorrhoea [Unknown]
  - Adverse event [Unknown]
  - Drug ineffective [Unknown]
